FAERS Safety Report 24648424 (Version 1)
Quarter: 2024Q4

REPORT INFORMATION
  Report Type: Spontaneous
  Country: US (occurrence: US)
  Receive Date: 20241121
  Receipt Date: 20241121
  Transmission Date: 20250115
  Serious: No
  Sender: AMERICAN REGENT
  Company Number: US-AMERICAN REGENT INC-2024000349

PATIENT
  Sex: Female

DRUGS (1)
  1. VENOFER [Suspect]
     Active Substance: IRON SUCROSE
     Indication: Product used for unknown indication
     Dosage: UNK UNK, SINGLE
     Dates: start: 20240126, end: 20240126

REACTIONS (3)
  - Sneezing [Unknown]
  - Retching [Unknown]
  - Nausea [Unknown]

NARRATIVE: CASE EVENT DATE: 20240126
